FAERS Safety Report 8513122-0 (Version None)
Quarter: 2012Q3

REPORT INFORMATION
  Report Type: 
  Country: None (occurrence: None)
  Receive Date: 20120716
  Receipt Date: 20120711
  Transmission Date: 20120928
  Serious: Yes (Hospitalization, Other)
  Sender: FDA-Public Use
  Company Number: FR-BRISTOL-MYERS SQUIBB COMPANY-16742173

PATIENT
  Age: 54 Year
  Sex: Male

DRUGS (1)
  1. IPILIMUMAB [Suspect]
     Indication: MALIGNANT MELANOMA
     Dosage: SECOND INFUSION
     Route: 042
     Dates: start: 20120523

REACTIONS (4)
  - COUGH [None]
  - ABDOMINAL DISTENSION [None]
  - SINUSITIS [None]
  - PYREXIA [None]
